FAERS Safety Report 4975071-4 (Version None)
Quarter: 2006Q2

REPORT INFORMATION
  Report Type: 
  Country: None (occurrence: None)
  Receive Date: 20060418
  Receipt Date: 20060412
  Transmission Date: 20061013
  Serious: Yes (Life-Threatening, Other)
  Sender: FDA-Public Use
  Company Number: GB-AVENTIS-200613924GDDC

PATIENT
  Age: 10 Year
  Sex: Male

DRUGS (3)
  1. DESMOPRESSIN [Suspect]
     Indication: ENURESIS
     Route: 048
     Dates: start: 20060324
  2. OXYBUTYNIN [Suspect]
     Indication: ENURESIS
     Route: 048
     Dates: start: 20060324
  3. INSULIN [Concomitant]
     Indication: DIABETES MELLITUS INSULIN-DEPENDENT
     Route: 058

REACTIONS (1)
  - HYPOGLYCAEMIA [None]
